FAERS Safety Report 5188218-4 (Version None)
Quarter: 2006Q4

REPORT INFORMATION
  Report Type: 
  Country: None (occurrence: None)
  Receive Date: 20061221
  Receipt Date: 20061211
  Transmission Date: 20070319
  Serious: Yes (Other)
  Sender: FDA-Public Use
  Company Number: PHMT2006CA02295

PATIENT

DRUGS (1)
  1. ZOMETA [Suspect]
     Dates: start: 20050501

REACTIONS (1)
  - MULTIPLE FRACTURES [None]
